FAERS Safety Report 23501970 (Version 2)
Quarter: 2024Q2

REPORT INFORMATION
  Report Type: Spontaneous
  Country: GR (occurrence: GR)
  Receive Date: 20240208
  Receipt Date: 20240409
  Transmission Date: 20240715
  Serious: No
  Sender: FDA-Public Use
  Company Number: GR-009507513-2306GRC000140

PATIENT
  Sex: Male

DRUGS (1)
  1. CUBICIN [Suspect]
     Active Substance: DAPTOMYCIN
     Indication: Staphylococcal infection
     Dosage: 6 MILLIGRAM/KILOGRAM, EVERY 12 HOURS

REACTIONS (2)
  - Off label use [Unknown]
  - Product use in unapproved indication [Unknown]
